FAERS Safety Report 7248338-7 (Version None)
Quarter: 2011Q1

REPORT INFORMATION
  Report Type: 
  Country: None (occurrence: None)
  Receive Date: 20110127
  Receipt Date: 20110118
  Transmission Date: 20110831
  Serious: Yes (Hospitalization)
  Sender: FDA-Public Use
  Company Number: PHHY2010US78829

PATIENT

DRUGS (1)
  1. AFINITOR [Suspect]
     Dosage: 10 MG, QD
     Route: 048

REACTIONS (3)
  - PLEURAL EFFUSION [None]
  - DYSPNOEA [None]
  - ASTHENIA [None]
